FAERS Safety Report 15638095 (Version 1)
Quarter: 2018Q4

REPORT INFORMATION
  Report Type: Spontaneous
  Country: US (occurrence: US)
  Receive Date: 20181119
  Receipt Date: 20181119
  Transmission Date: 20190205
  Serious: Yes (Death)
  Sender: FDA-Public Use
  Company Number: None

PATIENT
  Age: 60 Year
  Sex: Male
  Weight: 76.5 kg

DRUGS (5)
  1. IBUPROFEN. [Concomitant]
     Active Substance: IBUPROFEN
  2. RSO RICK SIMPSON OIL [Suspect]
     Active Substance: CANNABIDIOL\CANNABIS SATIVA SEED OIL
     Indication: NEOPLASM MALIGNANT
     Dosage: ?          OTHER ROUTE:TAKEN BY MOUTH AND RECTAL?
     Dates: start: 20170901, end: 20180601
  3. BACLOFEN. [Concomitant]
     Active Substance: BACLOFEN
  4. TRAMADOL. [Concomitant]
     Active Substance: TRAMADOL
  5. RICK SIMPSON OIL [Concomitant]

REACTIONS (3)
  - Malignant neoplasm progression [None]
  - Drug ineffective for unapproved indication [None]
  - Treatment failure [None]
